FAERS Safety Report 4863707-8 (Version None)
Quarter: 2005Q4

REPORT INFORMATION
  Report Type: 
  Country: None (occurrence: None)
  Receive Date: 20051222
  Receipt Date: 20050706
  Transmission Date: 20060501
  Serious: No
  Sender: FDA-Public Use
  Company Number: US-GLAXOSMITHKLINE-A0565191A

PATIENT
  Age: 58 Year
  Sex: Female

DRUGS (29)
  1. FLONASE [Suspect]
     Route: 045
  2. VESICARE [Concomitant]
  3. DARVOCET [Concomitant]
  4. FLEXERIL [Concomitant]
  5. NEURONTIN [Concomitant]
  6. ATENOLOL [Concomitant]
  7. TRIAMTERENE AND HYDROCHLOROTHIAZIDE [Concomitant]
  8. MEDROXYPROGESTERONE [Concomitant]
  9. PREMARIN [Concomitant]
  10. CLIDINIUM [Concomitant]
  11. PROTONIX [Concomitant]
  12. ALBUTEROL [Concomitant]
  13. SULFACET LOTION [Concomitant]
  14. MULTIVITAMIN WITH IRON [Concomitant]
  15. ASCORBIC ACID [Concomitant]
  16. BIOTIN [Concomitant]
  17. CALCIUM + D [Concomitant]
  18. ACIDOPHILUS [Concomitant]
  19. POTASSIUM [Concomitant]
  20. FIBER [Concomitant]
  21. ANTIHISTAMINE [Concomitant]
  22. GREEN TEA EXTRACT [Concomitant]
  23. ANTACID TAB [Concomitant]
  24. GAS RELIEF 80 [Concomitant]
  25. BEANO [Concomitant]
  26. ECHINACEA [Concomitant]
  27. OXYBUTYNIN [Concomitant]
  28. VITAMIN A [Concomitant]
  29. VITAMIN E [Concomitant]

REACTIONS (2)
  - FALL [None]
  - VERTIGO [None]
